FAERS Safety Report 9762172 (Version 1)
Quarter: 2013Q4

REPORT INFORMATION
  Report Type: Spontaneous
  Country: US (occurrence: US)
  Receive Date: 20131216
  Receipt Date: 20131216
  Transmission Date: 20140711
  Serious: No
  Sender: FDA-Public Use
  Company Number: US-BIOGENIDEC-2013BI106702

PATIENT
  Sex: Male

DRUGS (12)
  1. TECFIDERA [Suspect]
     Indication: MULTIPLE SCLEROSIS
     Route: 048
     Dates: start: 20130924
  2. BACLOFEN [Concomitant]
  3. COLACE [Concomitant]
  4. DOCQLACE [Concomitant]
  5. DOXYCYCLINE HYCLATE [Concomitant]
  6. DULCOLAX [Concomitant]
  7. ESCITALOPRAM OXALATE [Concomitant]
  8. GABAPENTIN [Concomitant]
  9. LACTULOSE [Concomitant]
  10. LEXAPRO [Concomitant]
  11. OXYBUTYNIN CHLORIDE ER [Concomitant]
  12. WARFARIN SODIUM [Concomitant]

REACTIONS (2)
  - Fatigue [Unknown]
  - Diarrhoea [Unknown]
